FAERS Safety Report 21836228 (Version 1)
Quarter: 2023Q1

REPORT INFORMATION
  Report Type: Spontaneous
  Country: FR (occurrence: FR)
  Receive Date: 20230109
  Receipt Date: 20230109
  Transmission Date: 20230418
  Serious: Yes (Other)
  Sender: FDA-Public Use
  Company Number: FR-SANOFI-01427959

PATIENT
  Age: 73 Year
  Sex: Female

DRUGS (3)
  1. HYDROCHLOROTHIAZIDE\IRBESARTAN [Suspect]
     Active Substance: HYDROCHLOROTHIAZIDE\IRBESARTAN
     Dosage: UNK
     Dates: start: 201905
  2. CALCIUM CARBONATE [Concomitant]
     Active Substance: CALCIUM CARBONATE
  3. MAGNESIUM [Concomitant]
     Active Substance: MAGNESIUM

REACTIONS (8)
  - Malignant melanoma [Unknown]
  - Skin discolouration [Unknown]
  - Skin plaque [Unknown]
  - Blood pressure increased [Unknown]
  - Arthralgia [Unknown]
  - Melanocytic naevus [Unknown]
  - Anxiety [Unknown]
  - Pruritus [Not Recovered/Not Resolved]
